FAERS Safety Report 9110857 (Version 1)
Quarter: 2013Q1

REPORT INFORMATION
  Report Type: Spontaneous
  Country: US (occurrence: US)
  Receive Date: 20130219
  Receipt Date: 20130219
  Transmission Date: 20140127
  Serious: No
  Sender: FDA-Public Use
  Company Number: US-BRISTOL-MYERS SQUIBB COMPANY-16369837

PATIENT
  Age: 61 Year
  Sex: Female

DRUGS (2)
  1. ORENCIA FOR INJ [Suspect]
     Route: 058
  2. PREDNISONE [Concomitant]

REACTIONS (3)
  - Poor venous access [Unknown]
  - Blood pressure increased [Unknown]
  - Palpitations [Unknown]
